FAERS Safety Report 14105877 (Version 1)
Quarter: 2017Q4

REPORT INFORMATION
  Report Type: Spontaneous
  Country: US (occurrence: US)
  Receive Date: 20171018
  Receipt Date: 20171018
  Transmission Date: 20180321
  Serious: No
  Sender: FDA-Public Use
  Company Number: US-AMGEN-USASP2016136205

PATIENT
  Age: 67 Year
  Sex: Female
  Weight: 140 kg

DRUGS (1)
  1. PROLIA [Suspect]
     Active Substance: DENOSUMAB
     Indication: OSTEOPOROSIS
     Dosage: 60 MG, Q6MO
     Route: 058
     Dates: start: 20150616

REACTIONS (2)
  - Osteoporosis [Not Recovered/Not Resolved]
  - Bone density decreased [Not Recovered/Not Resolved]
